FAERS Safety Report 7187202-9 (Version None)
Quarter: 2010Q4

REPORT INFORMATION
  Report Type: 
  Country: None (occurrence: None)
  Receive Date: 20101222
  Receipt Date: 20101221
  Transmission Date: 20110411
  Serious: Yes (Death, Other)
  Sender: FDA-Public Use
  Company Number: BR-ABBOTT-10P-020-0693142-00

PATIENT
  Weight: 85 kg

DRUGS (5)
  1. HUMIRA [Suspect]
     Indication: CROHN'S DISEASE
     Route: 058
     Dates: start: 20100713
  2. HUMIRA [Suspect]
     Route: 058
     Dates: end: 20101001
  3. SERTRALINE HYDROCHLORIDE [Concomitant]
     Indication: PRODUCT USED FOR UNKNOWN INDICATION
     Route: 048
  4. CLONAZEPAM [Concomitant]
     Indication: SLEEP DISORDER THERAPY
     Route: 048
  5. POYDORME [Concomitant]
     Indication: SLEEP DISORDER THERAPY
     Route: 048

REACTIONS (8)
  - BACTERAEMIA [None]
  - COUGH [None]
  - FISTULA [None]
  - IMMUNE SYSTEM DISORDER [None]
  - INTESTINAL OBSTRUCTION [None]
  - LUNG DISORDER [None]
  - MALNUTRITION [None]
  - SEPTIC SHOCK [None]
